FAERS Safety Report 5463130-1 (Version None)
Quarter: 2007Q3

REPORT INFORMATION
  Report Type: 
  Country: None (occurrence: None)
  Receive Date: 20070918
  Receipt Date: 20070918
  Transmission Date: 20080115
  Serious: Yes (Life-Threatening)
  Sender: FDA-Public Use
  Company Number: None

PATIENT
  Age: 53 Year
  Sex: Female
  Weight: 74.3 kg

DRUGS (3)
  1. DILAUDID [Suspect]
     Indication: PAIN MANAGEMENT
     Dosage: 1ML/HR 1ML/HR IT
     Route: 037
     Dates: start: 20070911, end: 20070913
  2. FENTANYL [Suspect]
     Indication: PAIN MANAGEMENT
     Dosage: 25MCG EVERY 3 DAYS TRANSDERMAL
     Route: 062
     Dates: start: 20070911, end: 20070913
  3. BUPIVACAINE HCL [Suspect]

REACTIONS (7)
  - DEPRESSED LEVEL OF CONSCIOUSNESS [None]
  - FLAT AFFECT [None]
  - HYPOXIA [None]
  - INSOMNIA [None]
  - LETHARGY [None]
  - SOMNOLENCE [None]
  - VOMITING [None]
